FAERS Safety Report 23065061 (Version 1)
Quarter: 2023Q4

REPORT INFORMATION
  Report Type: Spontaneous
  Country: US (occurrence: None)
  Receive Date: 20231013
  Receipt Date: 20231013
  Transmission Date: 20240109
  Serious: Yes (Life-Threatening, Hospitalization)
  Sender: FDA-Public Use
  Company Number: None

PATIENT
  Age: 71 Year
  Sex: Male

DRUGS (2)
  1. SACUBITRIL VALSARTAN SODIUM HYDRATE [Suspect]
     Active Substance: SACUBITRIL VALSARTAN SODIUM HYDRATE
     Dosage: OTHER QUANTITY : 1/2 TAB;?FREQUENCY : DAILY;?
     Route: 048
     Dates: start: 20221102, end: 20221116
  2. LASIX [Suspect]
     Active Substance: FUROSEMIDE
     Dates: end: 20221116

REACTIONS (6)
  - Presyncope [None]
  - Dizziness [None]
  - Hypotension [None]
  - Atrial fibrillation [None]
  - Overdose [None]
  - Therapy interrupted [None]

NARRATIVE: CASE EVENT DATE: 20221109
